FAERS Safety Report 7932066-6 (Version None)
Quarter: 2011Q4

REPORT INFORMATION
  Report Type: 
  Country: None (occurrence: None)
  Receive Date: 20111121
  Receipt Date: 20111114
  Transmission Date: 20120403
  Serious: Yes (Death, Hospitalization, Other)
  Sender: FDA-Public Use
  Company Number: JP-CEPHALON-2011003390

PATIENT
  Sex: Female
  Weight: 40 kg

DRUGS (3)
  1. BENDAMUSTINE HCL [Suspect]
     Indication: B-CELL LYMPHOMA
     Route: 042
     Dates: start: 20110131, end: 20110201
  2. ENTECAVIR [Concomitant]
     Dates: end: 20110406
  3. CODEINE PHOSPHATE [Concomitant]
     Dates: start: 20110207, end: 20110406

REACTIONS (12)
  - OEDEMA [None]
  - LUNG INFECTION [None]
  - HYPOKALAEMIA [None]
  - HYPONATRAEMIA [None]
  - NEUTROPHIL COUNT DECREASED [None]
  - PLATELET COUNT DECREASED [None]
  - PYREXIA [None]
  - LYMPHOCYTE COUNT DECREASED [None]
  - DIARRHOEA [None]
  - ANAEMIA [None]
  - B-CELL LYMPHOMA [None]
  - NAUSEA [None]
